FAERS Safety Report 9388006 (Version 2)
Quarter: 2013Q3

REPORT INFORMATION
  Report Type: Spontaneous
  Country: US (occurrence: None)
  Receive Date: 20130701
  Receipt Date: 20130812
  Transmission Date: 20140515
  Serious: Yes (Death, Hospitalization, Other)
  Sender: FDA-Public Use
  Company Number: 2013US001701

PATIENT
  Age: 57 Year
  Sex: Male
  Weight: 261 kg

DRUGS (5)
  1. ICLUSIG [Suspect]
     Indication: CHRONIC MYELOID LEUKAEMIA
     Route: 048
     Dates: start: 20130503, end: 20130528
  2. LASIX (FUROSEMIDE) [Concomitant]
  3. POTASSIUM [Concomitant]
  4. CARVEDILOL [Concomitant]
  5. ALBUTEROL [Concomitant]

REACTIONS (8)
  - Renal failure [None]
  - Haemoglobin decreased [None]
  - Platelet count decreased [None]
  - White blood cell count decreased [None]
  - Red blood cell count decreased [None]
  - Chronic myeloid leukaemia [None]
  - Malignant neoplasm progression [None]
  - Chronic myeloid leukaemia [None]
